FAERS Safety Report 10472115 (Version 1)
Quarter: 2014Q3

REPORT INFORMATION
  Report Type: Spontaneous
  Country: GR (occurrence: GR)
  Receive Date: 20140924
  Receipt Date: 20140924
  Transmission Date: 20150326
  Serious: Yes (Hospitalization)
  Sender: FDA-Public Use
  Company Number: GR-INDICUS PHARMA-000276

PATIENT
  Age: 80 Year
  Sex: Female

DRUGS (1)
  1. DONEPEZIL/DONEPEZIL HYDROCHLORIDE [Suspect]
     Active Substance: DONEPEZIL
     Indication: DEMENTIA ALZHEIMER^S TYPE

REACTIONS (6)
  - Myoclonus [Recovered/Resolved]
  - Encephalopathy [None]
  - Accidental overdose [Unknown]
  - Cerebral atrophy [None]
  - Hypertonia [None]
  - Drug administration error [Unknown]
